FAERS Safety Report 8379750-0 (Version None)
Quarter: 2012Q2

REPORT INFORMATION
  Report Type: 
  Country: None (occurrence: None)
  Receive Date: 20120523
  Receipt Date: 20120517
  Transmission Date: 20120825
  Serious: Yes (Hospitalization)
  Sender: FDA-Public Use
  Company Number: PHHY2011PA80074

PATIENT
  Age: 81 Year
  Sex: Female

DRUGS (2)
  1. CANDESARTAN CILEXETIL [Concomitant]
     Dosage: 16 MG, ONCE/SINGLE
     Route: 048
  2. ZOLEDRONOC ACID [Suspect]
     Indication: OSTEOPOROSIS
     Dosage: 5 MG, UNK
     Route: 042
     Dates: start: 20110812

REACTIONS (5)
  - CARDIAC FAILURE [None]
  - CHEST PAIN [None]
  - ACUTE MYOCARDIAL INFARCTION [None]
  - HYPERTENSIVE CRISIS [None]
  - DYSPNOEA [None]
